FAERS Safety Report 9585505 (Version 1)
Quarter: 2013Q4

REPORT INFORMATION
  Report Type: Spontaneous
  Country: KR (occurrence: KR)
  Receive Date: 20131003
  Receipt Date: 20131003
  Transmission Date: 20140711
  Serious: Yes (Hospitalization)
  Sender: FDA-Public Use
  Company Number: KR-AMGEN-KORSP2013069159

PATIENT
  Age: 16 Year
  Sex: Male

DRUGS (1)
  1. GRAN [Suspect]
     Indication: PRODUCT USED FOR UNKNOWN INDICATION
     Dosage: 750 MUG, UNK
     Route: 065
     Dates: start: 20130923, end: 20130925

REACTIONS (1)
  - Anaphylactic reaction [Recovering/Resolving]
